FAERS Safety Report 4491374-4 (Version None)
Quarter: 2004Q4

REPORT INFORMATION
  Report Type: 
  Country: None (occurrence: None)
  Receive Date: 20041029
  Receipt Date: 20041022
  Transmission Date: 20050328
  Serious: Yes (Hospitalization)
  Sender: FDA-Public Use
  Company Number: USA-2004-0017334

PATIENT
  Age: 40 Year
  Sex: Female

DRUGS (4)
  1. OXYCONTIN [Suspect]
     Indication: PAIN
     Dates: end: 20040808
  2. TYLENOL COLD NO DROWSINESS CAPLETS + GELCAPS (DEXTROMETHORPHAN HYDROBR [Suspect]
     Indication: PYREXIA
     Dosage: 6 CAP
     Dates: start: 20040808, end: 20040809
  3. ORAL CONTRACEPTIVE NOS (ORAL CONTRACEPTIVE NOS) [Concomitant]
  4. WELLBUTRIN [Concomitant]

REACTIONS (6)
  - ABNORMAL BEHAVIOUR [None]
  - AGGRESSION [None]
  - DISORIENTATION [None]
  - HALLUCINATION [None]
  - LETHARGY [None]
  - VOMITING [None]
